FAERS Safety Report 4703680-6 (Version None)
Quarter: 2005Q2

REPORT INFORMATION
  Report Type: 
  Country: None (occurrence: None)
  Receive Date: 20050208
  Receipt Date: 20050208
  Transmission Date: 20051028
  Serious: Yes (Other)
  Sender: FDA-Public Use
  Company Number: None

PATIENT
  Sex: Female

DRUGS (2)
  1. REMERON SOLTAB [Suspect]
     Indication: DISEASE RECURRENCE
     Dosage: 30MG TWO PO Q HS
     Route: 048
     Dates: start: 20010611, end: 20040823
  2. REMERON SOLTAB [Suspect]
     Indication: MAJOR DEPRESSION
     Dosage: 30MG TWO PO Q HS
     Route: 048
     Dates: start: 20010611, end: 20040823

REACTIONS (2)
  - CHOKING [None]
  - MALAISE [None]
